FAERS Safety Report 7182767-5 (Version None)
Quarter: 2010Q4

REPORT INFORMATION
  Report Type: 
  Country: None (occurrence: None)
  Receive Date: 20101221
  Receipt Date: 20100621
  Transmission Date: 20110411
  Serious: No
  Sender: FDA-Public Use
  Company Number: US-AMGEN-TCS411760

PATIENT

DRUGS (5)
  1. ENBREL [Suspect]
     Indication: RHEUMATOID ARTHRITIS
     Dosage: 50 MG, QWK
     Route: 058
     Dates: start: 20100503
  2. GABAPENTIN [Concomitant]
  3. TRAMADOL [Concomitant]
  4. METHOTREXATE [Concomitant]
     Dosage: 25 MG, QWK
     Dates: start: 20090101
  5. PREDNISONE [Concomitant]
     Dosage: UNK UNK, UNK
     Dates: end: 20100101

REACTIONS (3)
  - BACK PAIN [None]
  - MUSCULOSKELETAL STIFFNESS [None]
  - PAIN IN EXTREMITY [None]
